FAERS Safety Report 7443549-X (Version None)
Quarter: 2011Q2

REPORT INFORMATION
  Report Type: 
  Country: None (occurrence: None)
  Receive Date: 20110428
  Receipt Date: 20110426
  Transmission Date: 20111010
  Serious: Yes (Hospitalization)
  Sender: FDA-Public Use
  Company Number: FR-ABBOTT-11P-056-0721987-00

PATIENT
  Age: 28 Year
  Sex: Male

DRUGS (4)
  1. NICOTINELL TTS [Suspect]
     Indication: TOBACCO USER
     Dosage: DAILY, PATCH, CUTANEOUS
     Route: 062
     Dates: start: 20110212
  2. ATARAX [Suspect]
     Indication: PRODUCT USED FOR UNKNOWN INDICATION
     Dosage: 4 TIMES A DAY, COATED
     Route: 048
     Dates: start: 20110212
  3. DEPAKOTE [Suspect]
     Indication: HYPOMANIA
     Dosage: TWICE A DAY, GASTRO-RESISTANT
     Route: 048
     Dates: start: 20110212
  4. RISPERDAL [Suspect]
     Indication: HYPOMANIA
     Route: 048
     Dates: start: 20110212, end: 20110219

REACTIONS (3)
  - PRURITUS [None]
  - URTICARIA [None]
  - OEDEMA [None]
